FAERS Safety Report 5022893-X (Version None)
Quarter: 2006Q2

REPORT INFORMATION
  Report Type: 
  Country: None (occurrence: None)
  Receive Date: 20060426
  Receipt Date: 20060308
  Transmission Date: 20061013
  Serious: Yes (Other)
  Sender: FDA-Public Use
  Company Number: 2006042288

PATIENT
  Age: 48 Year
  Sex: Female

DRUGS (19)
  1. LYRICA [Suspect]
     Indication: ILL-DEFINED DISORDER
     Dosage: 300 MG (150 MG,2 IN 1 D)
  2. AMBIEN [Concomitant]
  3. ALL OTHER THERAPEUTIC PRODUCTS (ALL OTHER THERAPEUTIC PRODUCTS) [Concomitant]
  4. FLEXERIL [Concomitant]
  5. MIDRIN (DICHLORALPHENAZONE, ISOMETHEPTENE, PARACETAMOL) [Concomitant]
  6. MOBIC [Concomitant]
  7. DESYREL [Concomitant]
  8. PROVIGIL [Concomitant]
  9. DARVOCET [Concomitant]
  10. XANAX [Concomitant]
  11. ATROVENT [Concomitant]
  12. COMBIVENT [Concomitant]
  13. PULMICORT [Concomitant]
  14. NORVASC [Concomitant]
  15. DEMEROL [Concomitant]
  16. NYSTATIN [Concomitant]
  17. PROTONIX [Concomitant]
  18. LISINOPRIL [Concomitant]
  19. ALL OTHER THERAPEUTIC PRODUCTS (ALL OTHER THERAPEUTIC PRODUCTS) [Concomitant]

REACTIONS (3)
  - DYSARTHRIA [None]
  - HEADACHE [None]
  - MOVEMENT DISORDER [None]
